FAERS Safety Report 15929123 (Version 1)
Quarter: 2019Q1

REPORT INFORMATION
  Report Type: Spontaneous
  Country: FR (occurrence: FR)
  Receive Date: 20190206
  Receipt Date: 20190206
  Transmission Date: 20190417
  Serious: Yes (Other)
  Sender: FDA-Public Use
  Company Number: FR-MYLANLABS-2019M1010517

PATIENT
  Sex: Female

DRUGS (1)
  1. TAMOXIFEN [Suspect]
     Active Substance: TAMOXIFEN
     Indication: PRODUCT USED FOR UNKNOWN INDICATION
     Dosage: 20 MILLIGRAM, QD
     Route: 064
     Dates: start: 20080315

REACTIONS (2)
  - Foetal exposure during pregnancy [Recovered/Resolved]
  - Enlarged clitoris [Not Recovered/Not Resolved]

NARRATIVE: CASE EVENT DATE: 20080315
